FAERS Safety Report 7279644-8 (Version None)
Quarter: 2011Q1

REPORT INFORMATION
  Report Type: 
  Country: None (occurrence: None)
  Receive Date: 20110203
  Receipt Date: 20110203
  Transmission Date: 20110831
  Serious: Yes (Hospitalization)
  Sender: FDA-Public Use
  Company Number: None

PATIENT
  Sex: Female
  Weight: 59.6 kg

DRUGS (2)
  1. CISPLATIN [Suspect]
     Dosage: 129 MG
     Dates: end: 20101228
  2. TAXOL [Suspect]
     Dosage: 231 MG
     Dates: end: 20101227

REACTIONS (16)
  - STAPHYLOCOCCAL INFECTION [None]
  - INTERNATIONAL NORMALISED RATIO INCREASED [None]
  - HAEMOGLOBIN DECREASED [None]
  - ORAL CANDIDIASIS [None]
  - RENAL FAILURE ACUTE [None]
  - URINARY TRACT INFECTION ENTEROCOCCAL [None]
  - RECTAL HAEMORRHAGE [None]
  - FATIGUE [None]
  - GASTROINTESTINAL HAEMORRHAGE [None]
  - FEBRILE NEUTROPENIA [None]
  - CELLULITIS [None]
  - CATHETER SITE INFECTION [None]
  - DIVERTICULUM [None]
  - DEHYDRATION [None]
  - HYPOTENSION [None]
  - SUPRAVENTRICULAR TACHYCARDIA [None]
